FAERS Safety Report 10975873 (Version 2)
Quarter: 2015Q2

REPORT INFORMATION
  Report Type: Spontaneous
  Country: CA (occurrence: CA)
  Receive Date: 20150401
  Receipt Date: 20150415
  Transmission Date: 20150821
  Serious: Yes (Other)
  Sender: FDA-Public Use
  Company Number: CA-GE HEALTHCARE MEDICAL DIAGNOSTICS-OSCN-PR-1503S-0060

PATIENT
  Age: 54 Year
  Sex: Female
  Weight: 72.64 kg

DRUGS (3)
  1. OMNISCAN [Suspect]
     Active Substance: GADODIAMIDE
     Indication: MASS
     Route: 042
     Dates: start: 20150318, end: 20150318
  2. OMNISCAN [Suspect]
     Active Substance: GADODIAMIDE
     Indication: DIAGNOSTIC PROCEDURE
  3. OMNISCAN [Suspect]
     Active Substance: GADODIAMIDE
     Indication: UTERINE LEIOMYOMA

REACTIONS (4)
  - Swelling [Unknown]
  - Chest discomfort [Unknown]
  - Dyspnoea [Unknown]
  - Contrast media reaction [None]

NARRATIVE: CASE EVENT DATE: 20150318
